FAERS Safety Report 5013679-0 (Version None)
Quarter: 2006Q2

REPORT INFORMATION
  Report Type: 
  Country: None (occurrence: None)
  Receive Date: 20060525
  Receipt Date: 20060515
  Transmission Date: 20061013
  Serious: Yes (Hospitalization, Other)
  Sender: FDA-Public Use
  Company Number: HQWYE816304AUG04

PATIENT
  Age: 44 Year
  Sex: Female
  Weight: 80.81 kg

DRUGS (6)
  1. PREMARIN [Suspect]
  2. ESTRACE [Suspect]
     Dates: start: 19950601, end: 19980501
  3. ESTRIOL (ESTRIOL,) [Suspect]
  4. ORTHO TRI-CYCLEN [Suspect]
  5. PROGESTERONE [Suspect]
  6. YASMIN [Suspect]

REACTIONS (11)
  - ANXIETY [None]
  - BREAST CANCER METASTATIC [None]
  - BREAST MICROCALCIFICATION [None]
  - DEPRESSION [None]
  - FAT NECROSIS [None]
  - LIPOMA OF BREAST [None]
  - LYMPHOEDEMA [None]
  - METASTASES TO LYMPH NODES [None]
  - OESTROGEN RECEPTOR ASSAY POSITIVE [None]
  - PROGESTERONE RECEPTOR ASSAY POSITIVE [None]
  - SPLENIC LESION [None]
